FAERS Safety Report 8412295-8 (Version None)
Quarter: 2012Q2

REPORT INFORMATION
  Report Type: 
  Country: None (occurrence: None)
  Receive Date: 20120605
  Receipt Date: 20120515
  Transmission Date: 20120825
  Serious: No
  Sender: FDA-Public Use
  Company Number: US-AMGEN-USASP2012028094

PATIENT
  Age: 53 Year
  Sex: Female
  Weight: 68.027 kg

DRUGS (1)
  1. ENBREL [Suspect]
     Indication: PSORIATIC ARTHROPATHY
     Dosage: 50 MG, QWK
     Dates: start: 20120318

REACTIONS (10)
  - HEADACHE [None]
  - DRUG EFFECT DECREASED [None]
  - ERYTHEMA [None]
  - HAND DEFORMITY [None]
  - INJECTION SITE URTICARIA [None]
  - INJECTION SITE PAIN [None]
  - RASH [None]
  - HYPERACUSIS [None]
  - INJECTION SITE ERYTHEMA [None]
  - DIZZINESS [None]
